FAERS Safety Report 4534056-2 (Version None)
Quarter: 2004Q4

REPORT INFORMATION
  Report Type: 
  Country: None (occurrence: None)
  Receive Date: 20041221
  Receipt Date: 20041221
  Transmission Date: 20050328
  Serious: Yes (Other)
  Sender: FDA-Public Use
  Company Number: None

PATIENT
  Age: 51 Year
  Sex: Female
  Weight: 90.7 kg

DRUGS (8)
  1. DOXYCYCLINE [Suspect]
  2. SOTALOL HCL [Concomitant]
  3. POTASSIUM CHLORIDE [Concomitant]
  4. RANITIDINE HCL [Concomitant]
  5. INSULIN NPH HUMAN 100 U/ML INJ NOVOLIN N [Concomitant]
  6. METFORMIN HCL [Concomitant]
  7. TAMOXIFEN CITRATE [Concomitant]
  8. GEMFIBROZIL [Concomitant]

REACTIONS (1)
  - HEADACHE [None]
